FAERS Safety Report 12983091 (Version 1)
Quarter: 2016Q4

REPORT INFORMATION
  Report Type: Spontaneous
  Country: US (occurrence: US)
  Receive Date: 20161129
  Receipt Date: 20161129
  Transmission Date: 20170207
  Serious: No
  Sender: FDA-Public Use
  Company Number: US-MALLINCKRODT-T201602427

PATIENT
  Age: 65 Year
  Sex: Female

DRUGS (2)
  1. FENTANYL. [Concomitant]
     Active Substance: FENTANYL
     Dosage: UNK
     Dates: start: 2015, end: 201605
  2. FENTANYL TRANSDERMAL SYSTEM [Suspect]
     Active Substance: FENTANYL
     Indication: PAIN
     Dosage: 100MCG/HR 1 PATCH EVERY 72 HRS
     Route: 062
     Dates: start: 20160529

REACTIONS (4)
  - Pain [Not Recovered/Not Resolved]
  - Drug ineffective [Not Recovered/Not Resolved]
  - Weight bearing difficulty [Not Recovered/Not Resolved]
  - Sciatica [Not Recovered/Not Resolved]

NARRATIVE: CASE EVENT DATE: 20160531
